FAERS Safety Report 13021543 (Version 2)
Quarter: 2017Q1

REPORT INFORMATION
  Report Type: Spontaneous
  Country: US (occurrence: US)
  Receive Date: 20161213
  Receipt Date: 20170124
  Transmission Date: 20170428
  Serious: No
  Sender: FDA-Public Use
  Company Number: US-LEO PHARMA-245078

PATIENT
  Age: 75 Year
  Sex: Male

DRUGS (2)
  1. ASPIRIN. [Concomitant]
     Active Substance: ASPIRIN
     Indication: PRODUCT USED FOR UNKNOWN INDICATION
  2. PICATO [Suspect]
     Active Substance: INGENOL MEBUTATE
     Indication: ACTINIC KERATOSIS
     Route: 061
     Dates: start: 201611, end: 201611

REACTIONS (4)
  - Drug ineffective [Unknown]
  - Incorrect product storage [Unknown]
  - Drug administered at inappropriate site [Unknown]
  - Application site erythema [Recovered/Resolved]
